FAERS Safety Report 5913434-0 (Version None)
Quarter: 2008Q4

REPORT INFORMATION
  Report Type: 
  Country: None (occurrence: None)
  Receive Date: 20081008
  Receipt Date: 20081008
  Transmission Date: 20090506
  Serious: No
  Sender: FDA-Public Use
  Company Number: None

PATIENT
  Age: 57 Year
  Sex: Female
  Weight: 72.3 kg

DRUGS (10)
  1. DOXIL [Suspect]
     Dosage: 70 MG
  2. NEULASTA [Suspect]
     Dosage: 6 MG
  3. PREDNISONE TAB [Suspect]
     Dosage: 350 MG
  4. RITUXIMAB (MOAB C2B8 ANTI CD20, CHIMERIC) [Suspect]
     Dosage: 656 MG
  5. VINCRISTINE SULFATE [Suspect]
     Dosage: 2 MG
  6. CYCLOPHOSPHAMIDE [Suspect]
     Dosage: 1312 MG
  7. LEVOXYL [Concomitant]
  8. LEXAPRO [Concomitant]
  9. SENNOKOT [Concomitant]
  10. COREG [Concomitant]

REACTIONS (2)
  - JUGULAR VEIN THROMBOSIS [None]
  - SPLENIC VEIN THROMBOSIS [None]
